FAERS Safety Report 17476833 (Version 1)
Quarter: 2020Q1

REPORT INFORMATION
  Report Type: Report from Study
  Country: AU (occurrence: AU)
  Receive Date: 20200228
  Receipt Date: 20200228
  Transmission Date: 20200409
  Serious: Yes (Other)
  Sender: FDA-Public Use
  Company Number: AU-JNJFOC-20191047258

PATIENT
  Sex: Male
  Weight: 73 kg

DRUGS (1)
  1. STELARA [Suspect]
     Active Substance: USTEKINUMAB
     Indication: CROHN^S DISEASE
     Route: 058
     Dates: start: 20190226

REACTIONS (5)
  - Depression [Not Recovered/Not Resolved]
  - Paraesthesia [Unknown]
  - Crohn^s disease [Recovering/Resolving]
  - Weight decreased [Unknown]
  - Ileal stenosis [Unknown]
